FAERS Safety Report 5645898-4 (Version None)
Quarter: 2008Q1

REPORT INFORMATION
  Report Type: 
  Country: None (occurrence: None)
  Receive Date: 20080229
  Receipt Date: 20080219
  Transmission Date: 20080703
  Serious: Yes (Other)
  Sender: FDA-Public Use
  Company Number: GB-ABBOTT-08P-167-0437377-00

PATIENT
  Sex: Female

DRUGS (5)
  1. DEPAKOTE [Suspect]
     Indication: BIPOLAR DISORDER
     Route: 048
     Dates: start: 20080108
  2. CIPRALEX [Suspect]
     Indication: DEPRESSION
     Route: 048
     Dates: start: 20080116, end: 20080123
  3. CIPRALEX [Suspect]
     Indication: ANXIETY
  4. MIRTAZAPINE [Suspect]
     Indication: DEPRESSION
     Route: 048
     Dates: start: 19940101
  5. MIRTAZAPINE [Suspect]
     Indication: ANXIETY

REACTIONS (2)
  - HEADACHE [None]
  - SUICIDAL IDEATION [None]
